FAERS Safety Report 6263805-0 (Version None)
Quarter: 2009Q3

REPORT INFORMATION
  Report Type: 
  Country: None (occurrence: None)
  Receive Date: 20090701
  Receipt Date: 20090317
  Transmission Date: 20100115
  Serious: Yes (Other)
  Sender: FDA-Public Use
  Company Number: 188502USA

PATIENT

DRUGS (1)
  1. LAMOTRIGINE [Suspect]
     Dosage: DOSE INCREASED TO 400 MG BID

REACTIONS (2)
  - CONVULSION [None]
  - DRUG INEFFECTIVE [None]
